FAERS Safety Report 21270039 (Version 2)
Quarter: 2025Q3

REPORT INFORMATION
  Report Type: Spontaneous
  Country: US (occurrence: US)
  Receive Date: 20220830
  Receipt Date: 20250811
  Transmission Date: 20251021
  Serious: No
  Sender: GALDERMA
  Company Number: US-GALDERMA-US2022010303

PATIENT

DRUGS (5)
  1. PROACTIV MD ADAPALENE ACNE TREATMENT [Suspect]
     Active Substance: ADAPALENE
     Indication: Acne
     Route: 061
  2. COSMETICS [Concomitant]
     Active Substance: COSMETICS
     Indication: Acne
     Route: 061
  3. COSMETICS [Concomitant]
     Active Substance: COSMETICS
     Indication: Acne
     Route: 061
  4. PROACTIV ACNE BODY WASH [Concomitant]
     Active Substance: SALICYLIC ACID
     Indication: Acne
     Route: 061
  5. COSMETICS [Concomitant]
     Active Substance: COSMETICS
     Indication: Acne
     Route: 061

REACTIONS (2)
  - Acne [Unknown]
  - Drug ineffective [Unknown]
